FAERS Safety Report 4565210-1 (Version None)
Quarter: 2005Q1

REPORT INFORMATION
  Report Type: 
  Country: None (occurrence: None)
  Receive Date: 20050127
  Receipt Date: 20050127
  Transmission Date: 20050727
  Serious: Yes (Hospitalization)
  Sender: FDA-Public Use
  Company Number: None

PATIENT
  Age: 75 Year
  Sex: Male
  Weight: 77.1 kg

DRUGS (9)
  1. DOCETAXEL [Suspect]
     Indication: PROSTATE CANCER
     Dosage: 36MG/M2 WEEKLY X3 IV
     Route: 042
     Dates: start: 20040412, end: 20050110
  2. DEXAMETHASONE [Suspect]
     Indication: ANTIINFLAMMATORY THERAPY
     Dosage: 0.75MG BID
     Dates: start: 20040412, end: 20050110
  3. ASPIRIN [Concomitant]
  4. EPOGEN [Concomitant]
  5. NASALONEX [Concomitant]
  6. ZOMETA [Concomitant]
  7. MILK OF MAGNESIA WITH MINERAL OIL [Concomitant]
  8. ADVIL [Concomitant]
  9. METAMUCIL-2 [Concomitant]

REACTIONS (3)
  - ARTERIAL OCCLUSIVE DISEASE [None]
  - CHEST PAIN [None]
  - PNEUMONIA [None]
